FAERS Safety Report 9147965 (Version 1)
Quarter: 2013Q1

REPORT INFORMATION
  Report Type: Spontaneous
  Country: US (occurrence: US)
  Receive Date: 20130227
  Receipt Date: 20130227
  Transmission Date: 20140127
  Serious: Yes (Life-Threatening, Hospitalization)
  Sender: FDA-Public Use
  Company Number: US-BRACCO-007247

PATIENT
  Age: 65 Year
  Sex: Male

DRUGS (1)
  1. ISOVUE 300 [Suspect]
     Indication: FISTULOGRAM
     Route: 042
     Dates: start: 20111207, end: 20111207

REACTIONS (1)
  - Hypersensitivity [Recovered/Resolved]
